FAERS Safety Report 15150610 (Version 1)
Quarter: 2018Q3

REPORT INFORMATION
  Report Type: Spontaneous
  Country: IT (occurrence: IT)
  Receive Date: 20180716
  Receipt Date: 20180716
  Transmission Date: 20181010
  Serious: Yes (Other)
  Sender: FDA-Public Use
  Company Number: PHHY2018IT041255

PATIENT
  Age: 16 Year
  Sex: Female

DRUGS (2)
  1. TACROLIMUS. [Suspect]
     Active Substance: TACROLIMUS
     Indication: IMMUNOSUPPRESSANT DRUG THERAPY
  2. TACROLIMUS. [Suspect]
     Active Substance: TACROLIMUS
     Indication: LIVER TRANSPLANT
     Route: 065

REACTIONS (6)
  - Pseudomonas infection [Unknown]
  - Septic shock [Unknown]
  - Acute hepatic failure [Unknown]
  - Shock haemorrhagic [Unknown]
  - Candida infection [Unknown]
  - Arterial injury [Unknown]
